FAERS Safety Report 19622978 (Version 1)
Quarter: 2021Q3

REPORT INFORMATION
  Report Type: Other
  Country: CN (occurrence: CN)
  Receive Date: 20210728
  Receipt Date: 20210728
  Transmission Date: 20211014
  Serious: Yes (Other)
  Sender: FDA-Public Use
  Company Number: CN-ROCHE-2873480

PATIENT

DRUGS (4)
  1. TRASTUZUMAB. [Suspect]
     Active Substance: TRASTUZUMAB
     Indication: HER2 POSITIVE BREAST CANCER
     Dosage: THE FIRST DOSE WAS 8MG/KG BY INTRAVENOUS DRIP ON DAY 1, AND THEN CHANGED TO 6MG /KG
     Route: 065
  2. DOCETAXEL. [Suspect]
     Active Substance: DOCETAXEL
     Indication: HER2 POSITIVE BREAST CANCER
     Dosage: GIVEN ON DAY1; 21 DAYS AS 1 CYCLE, 6 CYCLES OF CHEMOTHERAPY
     Route: 041
  3. CARBOPLATIN. [Suspect]
     Active Substance: CARBOPLATIN
     Indication: HER2 POSITIVE BREAST CANCER
     Dosage: CARBOPLATIN AUC=6, GIVEN ON DAY1; 21 DAYS AS 1 CYCLE, 6 CYCLES OF CHEMOTHERAPY
     Route: 041
  4. DEXAMETHASONE. [Concomitant]
     Active Substance: DEXAMETHASONE

REACTIONS (2)
  - Myelosuppression [Unknown]
  - Cardiotoxicity [Unknown]
